FAERS Safety Report 7784682-2 (Version None)
Quarter: 2011Q3

REPORT INFORMATION
  Report Type: 
  Country: None (occurrence: None)
  Receive Date: 20110928
  Receipt Date: 20110928
  Transmission Date: 20111222
  Serious: Yes (Death, Other)
  Sender: FDA-Public Use
  Company Number: US-ABBOTT-11P-163-0849909-00

PATIENT
  Sex: Female
  Weight: 39.952 kg

DRUGS (17)
  1. POTASSIUM CHLORIDE CR [Concomitant]
     Indication: PRODUCT USED FOR UNKNOWN INDICATION
     Dosage: ONE TIME DAILY AS DIRECTED
     Route: 048
     Dates: start: 20090319
  2. CITRUS CALCIUM/VITAMIN D 200/250MG [Concomitant]
     Indication: PRODUCT USED FOR UNKNOWN INDICATION
     Dosage: 200/250MG - 2 TABLETS IN THE EVENING
     Route: 048
     Dates: start: 20090805
  3. IBUPROFEN [Concomitant]
     Indication: PAIN
     Dosage: 1 TABLET EVERY 6 HOURS AS NEEDED
     Route: 048
  4. VITAMIN D [Concomitant]
     Indication: PRODUCT USED FOR UNKNOWN INDICATION
     Dates: start: 20100702
  5. HUMIRA [Suspect]
     Indication: RHEUMATOID ARTHRITIS
     Dates: start: 20110523
  6. DONEPEZIL HYDROCHLORIDE [Concomitant]
     Indication: PRODUCT USED FOR UNKNOWN INDICATION
     Dosage: AT BEDTIME
     Route: 048
     Dates: start: 20031212
  7. FUROSEMIDE [Concomitant]
     Indication: OEDEMA PERIPHERAL
     Dosage: ONE TABLET DAILY AS NEEDED
     Route: 048
     Dates: start: 20080422
  8. ASPIRIN [Concomitant]
     Indication: PRODUCT USED FOR UNKNOWN INDICATION
     Route: 048
  9. FOLIC ACID [Concomitant]
     Indication: PRODUCT USED FOR UNKNOWN INDICATION
     Dosage: ONE TABLET DAILY AS DIRECTED
     Route: 048
     Dates: start: 20031212
  10. HYDROXYCHLOROQUINE SULFATE [Concomitant]
     Indication: PRODUCT USED FOR UNKNOWN INDICATION
     Route: 048
     Dates: start: 20031212
  11. ROZEREM [Concomitant]
     Indication: PRODUCT USED FOR UNKNOWN INDICATION
     Dosage: 1 TABLET AT BEDTIME AS NEEDED
     Route: 048
     Dates: start: 20110121
  12. OXYCODONE AND ACETAMINOPHEN [Concomitant]
     Indication: PRODUCT USED FOR UNKNOWN INDICATION
     Dosage: 10/325MG - 4 TIMES DAILY AS NEEDED
     Route: 048
     Dates: start: 20090807
  13. METHOTREXATE [Concomitant]
     Indication: PRODUCT USED FOR UNKNOWN INDICATION
     Dosage: 6 TABLETS ON SATURDAY
     Route: 048
     Dates: start: 20060511
  14. HYDROCODONE BITARTRATE AND ACETAMINOPHEN [Concomitant]
     Indication: PAIN
     Dosage: 5/500MG - 1-2 TABLETS EVERY 4-6 HOURS AS NEEDED
     Route: 048
     Dates: start: 20031212
  15. ASCRIPTIN [Concomitant]
     Indication: PRODUCT USED FOR UNKNOWN INDICATION
     Route: 048
  16. PREDNISONE [Concomitant]
     Indication: PRODUCT USED FOR UNKNOWN INDICATION
     Dosage: 2 TABLETS IN THE EVENING
     Route: 048
     Dates: start: 20031212
  17. VITAMIN D [Concomitant]
     Indication: PRODUCT USED FOR UNKNOWN INDICATION
     Dosage: ON THE 15TH
     Route: 048
     Dates: start: 20110121

REACTIONS (4)
  - AORTIC STENOSIS [None]
  - CARDIAC FAILURE [None]
  - DEMENTIA ALZHEIMER'S TYPE [None]
  - ARTERIAL INSUFFICIENCY [None]
